FAERS Safety Report 14694129 (Version 1)
Quarter: 2018Q1

REPORT INFORMATION
  Report Type: Spontaneous
  Country: US (occurrence: US)
  Receive Date: 20180329
  Receipt Date: 20180329
  Transmission Date: 20180509
  Serious: Yes (Hospitalization, Other)
  Sender: FDA-Public Use
  Company Number: US-SMITH AND NEPHEW, INC-2018SMT00048

PATIENT
  Age: 53 Year
  Sex: Male
  Weight: 213.15 kg

DRUGS (7)
  1. AMERIGEL [Suspect]
     Active Substance: DEVICE
     Indication: ULCER
     Route: 061
  2. LISINOPRIL. [Concomitant]
     Active Substance: LISINOPRIL
     Dosage: 20 MG, 2X/DAY
  3. METOPROLOL TARTRATE. [Concomitant]
     Active Substance: METOPROLOL TARTRATE
     Dosage: 50 MG, 2X/DAY
  4. COLLAGENASE SANTYL [Suspect]
     Active Substance: COLLAGENASE CLOSTRIDIUM HISTOLYTICUM
     Indication: ULCER
     Dosage: UNK, 1X/DAY
     Route: 061
     Dates: start: 201712, end: 20180221
  5. SAPHRIS [Concomitant]
     Active Substance: ASENAPINE MALEATE
     Dosage: 10 MG, 1X/DAY
  6. METFORMIN [Concomitant]
     Active Substance: METFORMIN HYDROCHLORIDE
     Dosage: 500 MG, 1X/DAY
  7. COLLAGENASE SANTYL [Suspect]
     Active Substance: COLLAGENASE CLOSTRIDIUM HISTOLYTICUM
     Dosage: UNK, 1X/DAY
     Route: 061
     Dates: start: 20180314

REACTIONS (3)
  - Cellulitis [Recovered/Resolved]
  - Toe amputation [Recovered/Resolved with Sequelae]
  - Wound complication [Not Recovered/Not Resolved]

NARRATIVE: CASE EVENT DATE: 201712
